FAERS Safety Report 23232044 (Version 3)
Quarter: 2024Q1

REPORT INFORMATION
  Report Type: Report from Study
  Country: US (occurrence: US)
  Receive Date: 20231127
  Receipt Date: 20240325
  Transmission Date: 20240410
  Serious: No
  Sender: FDA-Public Use
  Company Number: US-BRISTOL-MYERS SQUIBB COMPANY-2023-170058

PATIENT
  Age: 73 Year
  Sex: Female
  Weight: 81.65 kg

DRUGS (2)
  1. ORENCIA [Suspect]
     Active Substance: ABATACEPT
     Indication: Rheumatoid arthritis
     Dosage: DOSE : 3;     FREQ : EVERY COUPLE WEEKS INITIALLY AND NOW MONTHLY
     Route: 042
     Dates: start: 202310
  2. METHOTREXATE [Suspect]
     Active Substance: METHOTREXATE
     Indication: Product used for unknown indication

REACTIONS (2)
  - Drug ineffective [Unknown]
  - Lung disorder [Unknown]

NARRATIVE: CASE EVENT DATE: 20230101
